FAERS Safety Report 9206192 (Version 1)
Quarter: 2013Q1

REPORT INFORMATION
  Report Type: Spontaneous
  Country: US (occurrence: None)
  Receive Date: 20120709
  Receipt Date: 20120709
  Transmission Date: 20140127
  Serious: Yes (Other)
  Sender: FDA-Public Use
  Company Number: PHHY2011US67112

PATIENT
  Age: 89 Year
  Sex: Male

DRUGS (13)
  1. GLEEVEC (IMATINIB) UNKNOWN [Suspect]
     Indication: CHRONIC MYELOID LEUKAEMIA
     Route: 048
     Dates: start: 20090421, end: 20110722
  2. KEPRA (LEVETIRACETAM) [Concomitant]
  3. REMERON (MIRTAZAPINE) [Concomitant]
  4. PRAVACHOL (ORAVASTATIN SODIUM) [Concomitant]
  5. NEXIUM (ESOMEPRAZOLE MAGNESIUM) [Concomitant]
  6. LISINOPRIL (LISINOPRIL) [Concomitant]
  7. ECOTRIN LOW STRENGTH [Concomitant]
  8. DIGOXIN (DIGOXIN) [Concomitant]
  9. ARICEPT (DONEPEZIL HYDROCHLORIDE) [Concomitant]
  10. OMEPRAZOLE (OMEPRAZOLE) [Concomitant]
  11. DONEPEZIL HYDROCHLORIDE (DONEPEZIL HYDROCHLORIDE) [Concomitant]
  12. MIDODRINE HYDROCHLORIDE (MIDODRINE HYDROCHLORIDE) [Concomitant]
  13. SPIRIVA HANDHALER [Concomitant]

REACTIONS (2)
  - Leukaemia recurrent [None]
  - Drug ineffective [None]
